FAERS Safety Report 7571201-9 (Version None)
Quarter: 2011Q2

REPORT INFORMATION
  Report Type: 
  Country: None (occurrence: None)
  Receive Date: 20110624
  Receipt Date: 20110607
  Transmission Date: 20111010
  Serious: Yes (Hospitalization)
  Sender: FDA-Public Use
  Company Number: A0802924A

PATIENT
  Age: 50 Year
  Sex: Male
  Weight: 94.5 kg

DRUGS (20)
  1. VYTORIN [Concomitant]
  2. AVANDIA [Suspect]
     Indication: DIABETES MELLITUS
     Dosage: 8MG PER DAY
     Route: 048
     Dates: start: 19990101
  3. TEMAZEPAM [Concomitant]
  4. TOPROL-XL [Concomitant]
  5. ASPIRIN [Concomitant]
  6. ZOCOR [Concomitant]
  7. ADVAIR DISKUS 100/50 [Concomitant]
  8. HUMULIN R [Concomitant]
  9. LOVASTATIN [Concomitant]
  10. PROTONIX [Concomitant]
  11. METFORMIN HCL [Concomitant]
  12. PACERONE [Concomitant]
  13. KLOR-CON [Concomitant]
  14. LEVAQUIN [Concomitant]
  15. BENICAR [Concomitant]
  16. COREG [Concomitant]
  17. NOVOLIN N [Concomitant]
  18. FUROSEMIDE [Concomitant]
  19. DARVOCET [Concomitant]
  20. FERROUS SULFATE TAB [Concomitant]

REACTIONS (3)
  - CORONARY ARTERY DISEASE [None]
  - MYOCARDIAL INFARCTION [None]
  - CARDIAC FAILURE CONGESTIVE [None]
